FAERS Safety Report 7726798-2 (Version None)
Quarter: 2011Q3

REPORT INFORMATION
  Report Type: 
  Country: None (occurrence: None)
  Receive Date: 20110902
  Receipt Date: 20110823
  Transmission Date: 20111222
  Serious: Yes (Other)
  Sender: FDA-Public Use
  Company Number: JP-GLAXOSMITHKLINE-B0718866A

PATIENT
  Age: 85 Year
  Sex: Female

DRUGS (3)
  1. HERCEPTIN [Concomitant]
     Route: 042
  2. TYKERB [Suspect]
     Indication: BREAST CANCER
     Route: 048
  3. GEMZAR [Concomitant]
     Route: 042

REACTIONS (1)
  - MELAENA [None]
